FAERS Safety Report 4612399-1 (Version None)
Quarter: 2005Q1

REPORT INFORMATION
  Report Type: 
  Country: None (occurrence: None)
  Receive Date: 20050316
  Receipt Date: 20050302
  Transmission Date: 20050727
  Serious: Yes (Hospitalization, Other)
  Sender: FDA-Public Use
  Company Number: 230006M05USA

PATIENT
  Age: 28 Year
  Sex: Female
  Weight: 69 kg

DRUGS (6)
  1. REBIF [Suspect]
     Dosage: 44 MCG, 3 IN 1 WEEKS
  2. CORTICOSTEROIDS [Concomitant]
  3. ZANAFLEX [Concomitant]
  4. SOMA [Concomitant]
  5. SOLU-MEDROL [Concomitant]
  6. YASMIN (PETIBELLE FILMTABLETTEN) [Concomitant]

REACTIONS (8)
  - AUTOIMMUNE HEPATITIS [None]
  - COAGULOPATHY [None]
  - HEPATIC FAILURE [None]
  - HEPATIC NECROSIS [None]
  - HEPATITIS ACUTE [None]
  - LIVER TRANSPLANT [None]
  - MENTAL STATUS CHANGES [None]
  - SMOOTH MUSCLE ANTIBODY POSITIVE [None]
